FAERS Safety Report 9995402 (Version 2)
Quarter: 2014Q1

REPORT INFORMATION
  Report Type: Spontaneous
  Country: US (occurrence: US)
  Receive Date: 20140311
  Receipt Date: 20140311
  Transmission Date: 20141002
  Serious: Yes (Hospitalization, Other)
  Sender: FDA-Public Use
  Company Number: US-009507513-1010USA03065

PATIENT
  Sex: Female

DRUGS (2)
  1. FOSAMAX [Suspect]
     Indication: OSTEOPOROSIS PROPHYLAXIS
     Dosage: 70 MG, QW
     Route: 048
     Dates: start: 20030303, end: 20100905
  2. FOSAMAX [Suspect]
     Indication: OSTEOPOROSIS

REACTIONS (10)
  - Femur fracture [Recovered/Resolved]
  - Fall [Unknown]
  - Laceration [Unknown]
  - Femur fracture [Recovering/Resolving]
  - Concussion [Unknown]
  - Local swelling [Not Recovered/Not Resolved]
  - Rash [Unknown]
  - Bursitis [Unknown]
  - Visual acuity reduced [Unknown]
  - Secretion discharge [Unknown]
